FAERS Safety Report 18736416 (Version 1)
Quarter: 2021Q1

REPORT INFORMATION
  Report Type: Spontaneous
  Country: IT (occurrence: IT)
  Receive Date: 20210113
  Receipt Date: 20210113
  Transmission Date: 20210419
  Serious: Yes (Other)
  Sender: FDA-Public Use
  Company Number: IT-TEVA-2021-IT-1867084

PATIENT
  Age: 4 Year
  Sex: Male
  Weight: 18 kg

DRUGS (18)
  1. METHOTREXATE. [Suspect]
     Active Substance: METHOTREXATE
     Dosage: 12 MG
     Route: 042
     Dates: start: 20200408, end: 20200408
  2. FASTURTEC [Concomitant]
     Active Substance: RASBURICASE
  3. CYTARABINE. [Suspect]
     Active Substance: CYTARABINE
     Indication: BURKITT^S LYMPHOMA
     Dosage: 112.5 MG
     Route: 042
     Dates: start: 20200405, end: 20200406
  4. UGUROL [Concomitant]
     Active Substance: TRANEXAMIC ACID
  5. DEXAMETHASONE. [Concomitant]
     Active Substance: DEXAMETHASONE
  6. LEDERFOLIN [Concomitant]
     Active Substance: LEUCOVORIN CALCIUM
  7. PANTOPRAZOLE [Concomitant]
     Active Substance: PANTOPRAZOLE
  8. ETOPOSIDE. [Suspect]
     Active Substance: ETOPOSIDE
     Indication: BURKITT^S LYMPHOMA
     Dosage: 75 MG
     Route: 042
     Dates: start: 20200405, end: 20200406
  9. ZOFRAN [Concomitant]
     Active Substance: ONDANSETRON HYDROCHLORIDE
  10. UROMITEXAN [Concomitant]
     Active Substance: MESNA
  11. METHOTREXATE. [Suspect]
     Active Substance: METHOTREXATE
     Indication: BURKITT^S LYMPHOMA
     Dosage: 3750 MG
     Route: 042
     Dates: start: 20200402, end: 20200403
  12. BACTRIM [Concomitant]
     Active Substance: SULFAMETHOXAZOLE\TRIMETHOPRIM
  13. IFOSFAMIDE. [Suspect]
     Active Substance: IFOSFAMIDE
     Indication: BURKITT^S LYMPHOMA
     Dosage: 600 MG
     Route: 042
     Dates: start: 20200402, end: 20200406
  14. VINCRISTINE [Suspect]
     Active Substance: VINCRISTINE
     Indication: BURKITT^S LYMPHOMA
     Dosage: 1.12 MG
     Dates: start: 20200402, end: 20200402
  15. CYTARABINE. [Suspect]
     Active Substance: CYTARABINE
     Dosage: 30 MG
     Route: 042
     Dates: start: 20200408, end: 20200408
  16. URBASON [Concomitant]
     Active Substance: METHYLPREDNISOLONE
  17. DEURSIL [Concomitant]
     Active Substance: URSODIOL
  18. LASIX [Concomitant]
     Active Substance: FUROSEMIDE

REACTIONS (1)
  - Mucosal inflammation [Recovering/Resolving]

NARRATIVE: CASE EVENT DATE: 20200409
